FAERS Safety Report 25011306 (Version 2)
Quarter: 2025Q1

REPORT INFORMATION
  Report Type: Spontaneous
  Country: JP (occurrence: JP)
  Receive Date: 20250226
  Receipt Date: 20250317
  Transmission Date: 20250409
  Serious: Yes (Hospitalization, Other)
  Sender: CSL BEHRING
  Company Number: JP-BEH-2025196445

PATIENT
  Age: 58 Year
  Sex: Male

DRUGS (2)
  1. ANTIHEMOPHILIC FACTOR, HUMAN RECOMBINANT [Suspect]
     Active Substance: ANTIHEMOPHILIC FACTOR, HUMAN RECOMBINANT
     Indication: Haemorrhage prophylaxis
     Dosage: 40 IU/KG, BIW
     Route: 065
  2. ANTIHEMOPHILIC FACTOR, HUMAN RECOMBINANT [Suspect]
     Active Substance: ANTIHEMOPHILIC FACTOR, HUMAN RECOMBINANT
     Route: 065

REACTIONS (5)
  - Myocardial infarction [Unknown]
  - Cardiac failure [Unknown]
  - Palpitations [Unknown]
  - Dyspnoea [Unknown]
  - Coronary artery stenosis [Unknown]
